FAERS Safety Report 12600187 (Version 1)
Quarter: 2016Q3

REPORT INFORMATION
  Report Type: Spontaneous
  Country: IT (occurrence: IT)
  Receive Date: 20160727
  Receipt Date: 20160727
  Transmission Date: 20161109
  Serious: Yes (Other)
  Sender: FDA-Public Use
  Company Number: IT-EISAI MEDICAL RESEARCH-EC-2016-018837

PATIENT
  Age: 45 Year
  Sex: Female
  Weight: 85 kg

DRUGS (4)
  1. PARIET [Suspect]
     Active Substance: RABEPRAZOLE SODIUM
     Indication: INTENTIONAL SELF-INJURY
     Dosage: UNKNOWN
     Route: 048
     Dates: start: 20160720, end: 20160720
  2. ENTACT [Suspect]
     Active Substance: ESCITALOPRAM OXALATE
     Indication: INTENTIONAL SELF-INJURY
     Dosage: UNKNOWN
     Route: 048
     Dates: start: 20160720, end: 20160720
  3. LEVOSULPIRIDE [Suspect]
     Active Substance: LEVOSULPIRIDE
     Indication: INTENTIONAL SELF-INJURY
     Dosage: UNKNOWN
     Route: 048
     Dates: start: 20160720, end: 20160720
  4. EN [Suspect]
     Active Substance: DELORAZEPAM
     Indication: INTENTIONAL SELF-INJURY
     Dosage: UNKNOWN
     Route: 048
     Dates: start: 20160720, end: 20160720

REACTIONS (2)
  - Intentional overdose [Unknown]
  - Intentional self-injury [Unknown]

NARRATIVE: CASE EVENT DATE: 20160720
